FAERS Safety Report 6250316-1 (Version None)
Quarter: 2009Q2

REPORT INFORMATION
  Report Type: 
  Country: None (occurrence: None)
  Receive Date: 20090630
  Receipt Date: 20090624
  Transmission Date: 20091009
  Serious: Yes (Hospitalization)
  Sender: FDA-Public Use
  Company Number: AU-WYE-G03916509

PATIENT

DRUGS (1)
  1. PRISTIQ [Suspect]
     Dosage: UNKNOWN

REACTIONS (1)
  - PSYCHOTIC DISORDER [None]
